FAERS Safety Report 7619744-3 (Version None)
Quarter: 2011Q3

REPORT INFORMATION
  Report Type: 
  Country: None (occurrence: None)
  Receive Date: 20110719
  Receipt Date: 20110705
  Transmission Date: 20111222
  Serious: Yes (Hospitalization)
  Sender: FDA-Public Use
  Company Number: US-UCBSA-036691

PATIENT
  Sex: Male

DRUGS (3)
  1. APIXABAN [Suspect]
     Indication: THROMBOSIS PROPHYLAXIS
     Route: 048
     Dates: start: 20110615, end: 20110617
  2. ZAROXOLYN [Suspect]
     Dates: start: 20110426, end: 20110615
  3. LASIX [Suspect]
     Dates: start: 20101221, end: 20110615

REACTIONS (1)
  - RENAL FAILURE ACUTE [None]
